FAERS Safety Report 8554653 (Version 2)
Quarter: 2012Q4

REPORT INFORMATION
  Report Type: 
  Country: US (occurrence: US)
  Receive Date: 20120509
  Receipt Date: 20120910
  Transmission Date: 20130627
  Serious: Yes (Hospitalization, Other)
  Sender: FDA-Public Use
  Company Number: US-MPIJNJ-2011-04476

PATIENT
  Age: 78 Year
  Sex: Female

DRUGS (3)
  1. VELCADE [Suspect]
     Indication: MULTIPLE MYELOMA
     Dosage: 1.3 mg/m2, 1/week
     Route: 042
     Dates: start: 20110222, end: 20110628
  2. MELPHALAN [Suspect]
     Indication: MULTIPLE MYELOMA
     Dosage: 14 mg, Cyclic
     Route: 048
     Dates: start: 20110222, end: 20110614
  3. DECADRON                           /00016001/ [Suspect]
     Indication: MULTIPLE MYELOMA
     Dosage: 10 mg, UNK
     Route: 042
     Dates: start: 20110222, end: 20110614

REACTIONS (6)
  - Febrile neutropenia [Recovered/Resolved]
  - Fall [Recovered/Resolved]
  - Fracture [Unknown]
  - Escherichia urinary tract infection [Recovered/Resolved]
  - Sepsis [Recovered/Resolved]
  - Staphylococcus test positive [None]
